FAERS Safety Report 7393792-3 (Version None)
Quarter: 2011Q2

REPORT INFORMATION
  Report Type: 
  Country: None (occurrence: None)
  Receive Date: 20110405
  Receipt Date: 20110329
  Transmission Date: 20111010
  Serious: Yes (Death, Hospitalization, Congenital Anomaly, Other)
  Sender: FDA-Public Use
  Company Number: AU-ELI_LILLY_AND_COMPANY-AU201101002517

PATIENT
  Sex: Female

DRUGS (4)
  1. MULTI-VITAMIN [Concomitant]
     Route: 064
  2. PROZAC [Suspect]
     Indication: DEPRESSION
     Dosage: 20 MG, DAILY (1/D)
     Route: 064
     Dates: start: 20100401, end: 20110110
  3. PROZAC [Suspect]
     Dosage: 20 MG, DAILY (1/D)
     Route: 064
     Dates: start: 20100401, end: 20110110
  4. MULTI-VITAMIN [Concomitant]
     Route: 064

REACTIONS (17)
  - BLOOD GLUCOSE DECREASED [None]
  - DRUG EXPOSURE DURING PREGNANCY [None]
  - C-REACTIVE PROTEIN ABNORMAL [None]
  - HEART RATE INCREASED [None]
  - INDUCED LABOUR [None]
  - MOLYBDENUM COFACTOR DEFICIENCY [None]
  - BLOOD CALCIUM ABNORMAL [None]
  - BLOOD MAGNESIUM ABNORMAL [None]
  - MECONIUM STAIN [None]
  - GRAND MAL CONVULSION [None]
  - CONGENITAL CENTRAL NERVOUS SYSTEM ANOMALY [None]
  - RESPIRATORY DISTRESS [None]
  - FOETAL HYPOKINESIA [None]
  - BLOOD PHOSPHORUS ABNORMAL [None]
  - BRADYCARDIA [None]
  - BRAIN OEDEMA [None]
  - APNOEA [None]
